FAERS Safety Report 9698263 (Version 1)
Quarter: 2013Q4

REPORT INFORMATION
  Report Type: Spontaneous
  Country: US (occurrence: None)
  Receive Date: 20131115
  Receipt Date: 20131115
  Transmission Date: 20140711
  Serious: Yes (Hospitalization)
  Sender: FDA-Public Use
  Company Number: ACET20130032

PATIENT
  Age: 40 Year
  Sex: Female

DRUGS (1)
  1. Q-PAP EXTRA STRENGTH [Suspect]
     Indication: INTENTIONAL OVERDOSE
     Dosage: 100 IN 1 D
     Route: 048

REACTIONS (3)
  - Haemolytic anaemia [None]
  - Overdose [None]
  - Lactic acidosis [None]
